FAERS Safety Report 23798594 (Version 1)
Quarter: 2024Q2

REPORT INFORMATION
  Report Type: Spontaneous
  Country: US (occurrence: US)
  Receive Date: 20240430
  Receipt Date: 20240430
  Transmission Date: 20240716
  Serious: No
  Sender: FDA-Public Use
  Company Number: US-BAYER-2024A063647

PATIENT
  Age: 46 Year
  Sex: Female

DRUGS (2)
  1. MIRALAX [Suspect]
     Active Substance: POLYETHYLENE GLYCOL 3350
     Indication: Colonoscopy
     Dosage: CAPFULL TWICE OR 3 TIMES ADAY WITH GATORADE
     Route: 048
     Dates: start: 20240426, end: 20240427
  2. Dulcolax [Concomitant]
     Route: 065

REACTIONS (2)
  - Off label use [None]
  - Inappropriate schedule of product administration [None]

NARRATIVE: CASE EVENT DATE: 20240426
